FAERS Safety Report 4754738-7 (Version None)
Quarter: 2005Q3

REPORT INFORMATION
  Report Type: 
  Country: None (occurrence: None)
  Receive Date: 20050829
  Receipt Date: 20050819
  Transmission Date: 20060218
  Serious: Yes (Hospitalization)
  Sender: FDA-Public Use
  Company Number: PHBS2005JP12225

PATIENT
  Age: 12 Year
  Sex: Female

DRUGS (2)
  1. DIOVAN [Suspect]
     Indication: MEDICATION ERROR
     Dosage: 1440 MG, ONCE(18 X 80 MG TABLETS)
     Route: 048
     Dates: start: 20050817
  2. NORVASC [Suspect]
     Indication: MEDICATION ERROR
     Dosage: 60 MG, ONCE (12 X 5 MG TABLETS)
     Route: 048
     Dates: start: 20050817

REACTIONS (4)
  - ACCIDENTAL OVERDOSE [None]
  - BLOOD PRESSURE DIASTOLIC DECREASED [None]
  - DEPRESSED LEVEL OF CONSCIOUSNESS [None]
  - DIZZINESS [None]
